FAERS Safety Report 9267361 (Version 5)
Quarter: 2014Q4

REPORT INFORMATION
  Report Type: Spontaneous
  Country: JP (occurrence: JP)
  Receive Date: 20130502
  Receipt Date: 20141203
  Transmission Date: 20150529
  Serious: Yes (Hospitalization, Other)
  Sender: FDA-Public Use
  Company Number: JP-PFIZER INC-2013137097

PATIENT
  Age: 33 Year
  Sex: Male

DRUGS (23)
  1. OLOPATADINE [Concomitant]
     Active Substance: OLOPATADINE
     Indication: NEURALGIA
  2. DICLOFENAC [Concomitant]
     Active Substance: DICLOFENAC
     Indication: HYPOAESTHESIA
     Dosage: UNK
  3. LYRICA [Suspect]
     Active Substance: PREGABALIN
     Indication: NEURALGIA
     Dosage: 150 MG, DAILY
     Route: 048
  4. OLOPATADINE [Concomitant]
     Active Substance: OLOPATADINE
     Indication: HYPOAESTHESIA
     Dosage: UNK
  5. OLOPATADINE [Concomitant]
     Active Substance: OLOPATADINE
     Indication: SLEEP DISORDER
  6. OMEPRAL [Concomitant]
     Active Substance: OMEPRAZOLE
     Indication: HYPOAESTHESIA
     Dosage: UNK
     Route: 048
  7. OMEPRAL [Concomitant]
     Active Substance: OMEPRAZOLE
     Indication: SPONDYLITIC MYELOPATHY
  8. QUAZEPAM. [Concomitant]
     Active Substance: QUAZEPAM
     Indication: SLEEP DISORDER
  9. QUAZEPAM. [Concomitant]
     Active Substance: QUAZEPAM
     Indication: SPONDYLITIC MYELOPATHY
  10. OMEPRAL [Concomitant]
     Active Substance: OMEPRAZOLE
     Indication: NEURALGIA
  11. QUAZEPAM. [Concomitant]
     Active Substance: QUAZEPAM
     Indication: HYPOAESTHESIA
     Dosage: UNK
  12. DICLOFENAC [Concomitant]
     Active Substance: DICLOFENAC
     Indication: MUSCULAR WEAKNESS
  13. QUAZEPAM. [Concomitant]
     Active Substance: QUAZEPAM
     Indication: NEURALGIA
  14. DICLOFENAC [Concomitant]
     Active Substance: DICLOFENAC
     Indication: SPONDYLITIC MYELOPATHY
  15. CEFTRIAXONE. [Concomitant]
     Active Substance: CEFTRIAXONE
     Indication: PROPHYLAXIS
     Dosage: UNK
  16. LYRICA [Suspect]
     Active Substance: PREGABALIN
     Dosage: 600 MG, DAILY
     Route: 048
  17. OLOPATADINE [Concomitant]
     Active Substance: OLOPATADINE
     Indication: MUSCULAR WEAKNESS
  18. DICLOFENAC [Concomitant]
     Active Substance: DICLOFENAC
     Indication: SLEEP DISORDER
  19. OMEPRAL [Concomitant]
     Active Substance: OMEPRAZOLE
     Indication: SLEEP DISORDER
  20. QUAZEPAM. [Concomitant]
     Active Substance: QUAZEPAM
     Indication: MUSCULAR WEAKNESS
  21. OLOPATADINE [Concomitant]
     Active Substance: OLOPATADINE
     Indication: SPONDYLITIC MYELOPATHY
  22. DICLOFENAC [Concomitant]
     Active Substance: DICLOFENAC
     Indication: NEURALGIA
  23. OMEPRAL [Concomitant]
     Active Substance: OMEPRAZOLE
     Indication: MUSCULAR WEAKNESS

REACTIONS (2)
  - Clostridium difficile infection [Recovered/Resolved]
  - Agranulocytosis [Recovered/Resolved]
